FAERS Safety Report 16074711 (Version 2)
Quarter: 2019Q2

REPORT INFORMATION
  Report Type: Report from Study
  Country: US (occurrence: US)
  Receive Date: 20190314
  Receipt Date: 20190424
  Transmission Date: 20190711
  Serious: Yes (Other)
  Sender: FDA-Public Use
  Company Number: PHEH2019US010501

PATIENT
  Age: 62 Year
  Sex: Female

DRUGS (1)
  1. TRAVATAN Z [Suspect]
     Active Substance: TRAVOPROST
     Indication: GLAUCOMA
     Dosage: UNK
     Route: 047
     Dates: start: 201808

REACTIONS (5)
  - Intraocular pressure increased [Unknown]
  - Eye disorder [Unknown]
  - Device damage [Unknown]
  - Struck by lightning [Unknown]
  - Diplopia [Unknown]

NARRATIVE: CASE EVENT DATE: 201808
